FAERS Safety Report 8925529 (Version 1)
Quarter: 2012Q4

REPORT INFORMATION
  Report Type: 
  Country: US (occurrence: US)
  Receive Date: 20121126
  Receipt Date: 20121126
  Transmission Date: 20130627
  Serious: Yes (Hospitalization)
  Sender: FDA-Public Use
  Company Number: US-BAYER-2012-120063

PATIENT
  Age: 38 Year
  Sex: Female

DRUGS (4)
  1. YAZ [Suspect]
  2. YASMIN [Suspect]
  3. ALIMENTARY TRACT AND METABOLISM [Concomitant]
  4. PEPCID [Concomitant]

REACTIONS (1)
  - Pulmonary embolism [Recovered/Resolved]
